FAERS Safety Report 5095875-X (Version None)
Quarter: 2006Q3

REPORT INFORMATION
  Report Type: 
  Country: None (occurrence: None)
  Receive Date: 20060727
  Receipt Date: 20060418
  Transmission Date: 20061208
  Serious: No
  Sender: FDA-Public Use
  Company Number: FACT0600225

PATIENT
  Age: 26 Year
  Sex: Female
  Weight: 40.8 kg

DRUGS (1)
  1. FACTIVE [Suspect]
     Indication: RESPIRATORY TRACT INFECTION BACTERIAL
     Dosage: 320 MG, SINGLE, ORAL
     Route: 048
     Dates: start: 20060417, end: 20060417

REACTIONS (3)
  - CONFUSIONAL STATE [None]
  - DIZZINESS [None]
  - SOMNOLENCE [None]
